FAERS Safety Report 20228208 (Version 3)
Quarter: 2023Q1

REPORT INFORMATION
  Report Type: Other
  Country: FR (occurrence: FR)
  Receive Date: 20211224
  Receipt Date: 20230309
  Transmission Date: 20230418
  Serious: Yes (Life-Threatening, Hospitalization)
  Sender: FDA-Public Use
  Company Number: None

PATIENT

DRUGS (3)
  1. RUXOLITINIB [Suspect]
     Active Substance: RUXOLITINIB
     Indication: VEXAS syndrome
     Dosage: 20 MG
     Route: 048
     Dates: start: 202110, end: 20211205
  2. RUXOLITINIB [Suspect]
     Active Substance: RUXOLITINIB
     Dosage: 1 DOSAGE FORM, BID (1 CP MATIN ET SOIR)
     Route: 065
     Dates: start: 20211106
  3. PREDNISONE [Suspect]
     Active Substance: PREDNISONE
     Indication: VEXAS syndrome
     Dosage: 60 MG
     Route: 048
     Dates: start: 2019

REACTIONS (3)
  - Perichondritis [Not Recovered/Not Resolved]
  - Cerebral venous thrombosis [Recovering/Resolving]
  - Cerebral thrombosis [Recovered/Resolved]

NARRATIVE: CASE EVENT DATE: 20211107
